FAERS Safety Report 7633808-X (Version None)
Quarter: 2011Q3

REPORT INFORMATION
  Report Type: 
  Country: None (occurrence: None)
  Receive Date: 20110725
  Receipt Date: 20110720
  Transmission Date: 20111222
  Serious: Yes (Disabling)
  Sender: FDA-Public Use
  Company Number: US-MERCK-1106USA00024

PATIENT
  Age: 59 Year
  Sex: Female
  Weight: 64 kg

DRUGS (2)
  1. MAXALT [Suspect]
     Indication: MIGRAINE
     Route: 048
     Dates: start: 20110505, end: 20110506
  2. LOTENSIN [Concomitant]
     Route: 065

REACTIONS (5)
  - MIGRAINE [None]
  - PHOTOSENSITIVITY REACTION [None]
  - DRUG INEFFECTIVE [None]
  - VISION BLURRED [None]
  - HYPERACUSIS [None]
